FAERS Safety Report 6248330-5 (Version None)
Quarter: 2009Q2

REPORT INFORMATION
  Report Type: 
  Country: None (occurrence: None)
  Receive Date: 20090629
  Receipt Date: 20090617
  Transmission Date: 20091009
  Serious: Yes (Hospitalization, Other)
  Sender: FDA-Public Use
  Company Number: PHHY2009AU21861

PATIENT
  Age: 62 Year
  Sex: Male

DRUGS (6)
  1. ACLASTA [Suspect]
     Indication: OSTEOPOROSIS
     Dosage: 5 ML
     Route: 042
     Dates: start: 20090514
  2. CALTRATE PLUS [Concomitant]
     Dosage: 200/50
  3. BUPRENORPHINE (NORSPAN) [Concomitant]
     Dosage: 10 UG, UNK
  4. SERETIDE MITE [Concomitant]
     Dosage: 250 G, BID
  5. SOMAC [Concomitant]
     Dosage: 20 G, UNK
  6. CONTEO [Concomitant]
     Dosage: 100 G, UNK

REACTIONS (4)
  - CHRONIC OBSTRUCTIVE PULMONARY DISEASE [None]
  - MALAISE [None]
  - PAIN [None]
  - PLEURAL EFFUSION [None]
